FAERS Safety Report 25112176 (Version 1)
Quarter: 2025Q1

REPORT INFORMATION
  Report Type: Spontaneous
  Country: US (occurrence: None)
  Receive Date: 20250321
  Receipt Date: 20250321
  Transmission Date: 20250408
  Serious: Yes (Hospitalization)
  Sender: FDA-CTU
  Company Number: None

PATIENT
  Age: 65 Year
  Sex: Male

DRUGS (2)
  1. LENVIMA [Suspect]
     Active Substance: LENVATINIB
     Indication: Hepatic cancer
     Dosage: 3 MG DAILY ORAL
     Route: 048
     Dates: start: 20250313, end: 20250320
  2. LENVIMA [Concomitant]
     Active Substance: LENVATINIB
     Dates: start: 20250313, end: 20250320

REACTIONS (1)
  - Enterovesical fistula [None]

NARRATIVE: CASE EVENT DATE: 20250320
